FAERS Safety Report 5128247-X (Version None)
Quarter: 2006Q4

REPORT INFORMATION
  Report Type: 
  Country: None (occurrence: None)
  Receive Date: 20061011
  Receipt Date: 20061004
  Transmission Date: 20070319
  Serious: Yes (Hospitalization)
  Sender: FDA-Public Use
  Company Number: 06-NIP00148

PATIENT
  Age: 65 Year
  Sex: Male

DRUGS (1)
  1. NIPENT [Suspect]
     Indication: HAIRY CELL LEUKAEMIA
     Dosage: -- (TOT 9 CYC; 1 CYC/2 WKS), INTRAVENOUS
     Route: 042
     Dates: end: 20040201

REACTIONS (8)
  - ANGIOPATHY [None]
  - BASEDOW'S DISEASE [None]
  - ERYTHEMA NODOSUM [None]
  - GOITRE [None]
  - LUNG INFILTRATION [None]
  - PALPITATIONS [None]
  - SARCOIDOSIS [None]
  - WEIGHT DECREASED [None]
